FAERS Safety Report 23746706 (Version 1)
Quarter: 2024Q2

REPORT INFORMATION
  Report Type: Spontaneous
  Country: CN (occurrence: CN)
  Receive Date: 20240416
  Receipt Date: 20240416
  Transmission Date: 20240716
  Serious: Yes (Hospitalization, Other)
  Sender: FDA-Public Use
  Company Number: CN-GLAXOSMITHKLINE-CN2024APC046366

PATIENT

DRUGS (1)
  1. FLUTICASONE PROPIONATE [Suspect]
     Active Substance: FLUTICASONE PROPIONATE
     Indication: Dyspnoea
     Dosage: 1 MG, BID
     Dates: start: 20240329, end: 20240331

REACTIONS (4)
  - Interstitial lung disease [Recovered/Resolved]
  - Infection [Recovered/Resolved]
  - Agitation [Recovered/Resolved]
  - Irritability [Recovered/Resolved]

NARRATIVE: CASE EVENT DATE: 20240331
